FAERS Safety Report 23858166 (Version 1)
Quarter: 2024Q2

REPORT INFORMATION
  Report Type: Spontaneous
  Country: US (occurrence: None)
  Receive Date: 20240514
  Receipt Date: 20240514
  Transmission Date: 20240716
  Serious: Yes (Hospitalization)
  Sender: FDA-Public Use
  Company Number: None

PATIENT
  Age: 75 Year
  Sex: Female
  Weight: 60.75 kg

DRUGS (1)
  1. LEQEMBI [Suspect]
     Active Substance: LECANEMAB-IRMB
     Indication: Dementia Alzheimer^s type
     Dosage: OTHER FREQUENCY : EVERY 2 WEEKS;?OTHER ROUTE : INFUSION;?
     Route: 050
     Dates: start: 20240404, end: 20240502

REACTIONS (5)
  - Confusional state [None]
  - Anxiety [None]
  - Amyloid related imaging abnormality-oedema/effusion [None]
  - Amyloid related imaging abnormality-microhaemorrhages and haemosiderin deposits [None]
  - Seizure [None]

NARRATIVE: CASE EVENT DATE: 20240509
